FAERS Safety Report 22625508 (Version 1)
Quarter: 2023Q2

REPORT INFORMATION
  Report Type: Spontaneous
  Country: MX (occurrence: MX)
  Receive Date: 20230621
  Receipt Date: 20230621
  Transmission Date: 20230721
  Serious: Yes (Death, Hospitalization, Other)
  Sender: FDA-Public Use
  Company Number: MX-SUN PHARMACEUTICAL INDUSTRIES LTD-2023R1-395638

PATIENT
  Age: 23 Year
  Sex: Female

DRUGS (1)
  1. FERROUS SULFATE [Suspect]
     Active Substance: FERROUS SULFATE
     Indication: Hereditary haemorrhagic telangiectasia
     Dosage: 200 MILLIGRAM, DAILY
     Route: 065

REACTIONS (1)
  - Drug ineffective [Fatal]
